FAERS Safety Report 8411416-0 (Version None)
Quarter: 2012Q2

REPORT INFORMATION
  Report Type: 
  Country: None (occurrence: None)
  Receive Date: 20120605
  Receipt Date: 20120522
  Transmission Date: 20120825
  Serious: No
  Sender: FDA-Public Use
  Company Number: US-BAYER-2012-052641

PATIENT
  Age: 82 Year
  Sex: Female
  Weight: 77.098 kg

DRUGS (5)
  1. ALEVE (CAPLET) [Suspect]
     Indication: ANALGESIC THERAPY
     Dosage: 2 DF, BID
     Route: 048
     Dates: start: 20120505, end: 20120510
  2. MYSOLINE [Concomitant]
  3. SYNTHROID [Concomitant]
  4. RESTORIL [Concomitant]
  5. LIPITOR [Concomitant]

REACTIONS (1)
  - NO ADVERSE EVENT [None]
